FAERS Safety Report 8507943-8 (Version None)
Quarter: 2012Q3

REPORT INFORMATION
  Report Type: 
  Country: None (occurrence: None)
  Receive Date: 20120709
  Receipt Date: 20120709
  Transmission Date: 20120928
  Serious: Yes (Hospitalization)
  Sender: FDA-Public Use
  Company Number: None

PATIENT
  Age: 52 Year
  Sex: Male
  Weight: 90.2 kg

DRUGS (1)
  1. LAMISIL [Suspect]
     Indication: TINEA PEDIS
     Dosage: 250 MG DAILY PO
     Route: 048
     Dates: start: 20120604, end: 20120618

REACTIONS (13)
  - DERMATITIS [None]
  - LIVER DISORDER [None]
  - DRUG HYPERSENSITIVITY [None]
  - RENAL DISORDER [None]
  - DRUG RASH WITH EOSINOPHILIA AND SYSTEMIC SYMPTOMS [None]
  - CHROMATURIA [None]
  - ORAL PAIN [None]
  - JAUNDICE [None]
  - ACUTE GENERALISED EXANTHEMATOUS PUSTULOSIS [None]
  - OLIGURIA [None]
  - SKIN EXFOLIATION [None]
  - RASH ERYTHEMATOUS [None]
  - DYSPNOEA [None]
